FAERS Safety Report 19804308 (Version 1)
Quarter: 2021Q3

REPORT INFORMATION
  Report Type: Spontaneous
  Country: US (occurrence: US)
  Receive Date: 20210908
  Receipt Date: 20210908
  Transmission Date: 20211014
  Serious: No
  Sender: FDA-Public Use
  Company Number: US-FARMAPROD-202105-0688

PATIENT
  Sex: Female

DRUGS (16)
  1. AMOXICILLIN. [Concomitant]
     Active Substance: AMOXICILLIN
  2. NAPROXEN. [Concomitant]
     Active Substance: NAPROXEN
  3. ACETAMINOPHEN AND CODEINE [Concomitant]
     Active Substance: ACETAMINOPHEN\CODEINE PHOSPHATE
  4. RESTASIS [Concomitant]
     Active Substance: CYCLOSPORINE
     Dosage: DROPERETTE
  5. SUPER B?50 COMPLEX [Concomitant]
  6. COENZYME Q10 [Concomitant]
     Active Substance: DIETARY SUPPLEMENT\UBIDECARENONE
  7. CALCIUM/VITIMINE D3 [Concomitant]
     Dosage: 500MG CALCIUM
  8. ZOLPIDEM TARTRATE. [Concomitant]
     Active Substance: ZOLPIDEM TARTRATE
  9. REFRESH OPTIVE MEGA?3 [Concomitant]
     Active Substance: CARBOXYMETHYLCELLULOSE SODIUM\GLYCERIN\POLYSORBATE 80
  10. ACETAMINOPHEN. [Concomitant]
     Active Substance: ACETAMINOPHEN
  11. EZETIMIBE. [Concomitant]
     Active Substance: EZETIMIBE
  12. CENTRUM SILVER .4 [Concomitant]
     Dosage: 300?250 MG
  13. SYNTHROID [Concomitant]
     Active Substance: LEVOTHYROXINE SODIUM
  14. VITAMINE C [Concomitant]
     Active Substance: ASCORBIC ACID
  15. LUTEIN [Concomitant]
     Active Substance: LUTEIN
  16. OXERVATE [Suspect]
     Active Substance: CENEGERMIN-BKBJ
     Indication: NEUROTROPHIC KERATOPATHY
     Route: 047
     Dates: start: 20210419

REACTIONS (1)
  - Product storage error [Unknown]
